FAERS Safety Report 5497474-4 (Version None)
Quarter: 2007Q4

REPORT INFORMATION
  Report Type: 
  Country: None (occurrence: None)
  Receive Date: 20071025
  Receipt Date: 20061120
  Transmission Date: 20080405
  Serious: No
  Sender: FDA-Public Use
  Company Number: A0628157A

PATIENT
  Age: 81 Year
  Sex: Female

DRUGS (6)
  1. ADVAIR DISKUS 100/50 [Suspect]
     Indication: ASTHMA
     Route: 055
  2. ASMANEX TWISTHALER [Concomitant]
  3. ACIPHEX [Concomitant]
  4. ALBUTEROL [Concomitant]
  5. SINGULAIR [Concomitant]
  6. METHYLPREDNISOLONE [Concomitant]

REACTIONS (1)
  - CANDIDIASIS [None]
